FAERS Safety Report 17571347 (Version 1)
Quarter: 2020Q1

REPORT INFORMATION
  Report Type: Spontaneous
  Country: US (occurrence: US)
  Receive Date: 20200323
  Receipt Date: 20200323
  Transmission Date: 20200409
  Serious: Yes (Other)
  Sender: FDA-Public Use
  Company Number: US-PFIZER INC-2020122330

PATIENT
  Age: 20 Year
  Sex: Female
  Weight: 98.43 kg

DRUGS (4)
  1. PREDNISONE. [Suspect]
     Active Substance: PREDNISONE
     Indication: PNEUMONIA
     Dosage: UNK
     Dates: start: 202002
  2. VENTOLINE [SALBUTAMOL] [Concomitant]
     Active Substance: ALBUTEROL SULFATE
     Indication: ASTHMA
     Dosage: UNK, AS NEEDED
  3. PREDNISONE. [Suspect]
     Active Substance: PREDNISONE
     Indication: PNEUMONIA
     Dosage: UNK
     Dates: start: 20200220
  4. DEPO-PROVERA [Suspect]
     Active Substance: MEDROXYPROGESTERONE ACETATE
     Indication: CONTRACEPTION
     Dosage: UNK
     Dates: start: 20200212

REACTIONS (9)
  - Petechiae [Unknown]
  - Mania [Unknown]
  - Paraesthesia [Unknown]
  - Injection site swelling [Unknown]
  - Swelling face [Unknown]
  - Anxiety [Unknown]
  - Pneumonia [Unknown]
  - Injection site pain [Unknown]
  - Seizure [Unknown]

NARRATIVE: CASE EVENT DATE: 202002
